FAERS Safety Report 9636383 (Version 1)
Quarter: 2013Q4

REPORT INFORMATION
  Report Type: Report from Study
  Country: JP (occurrence: JP)
  Receive Date: 20131021
  Receipt Date: 20131021
  Transmission Date: 20140711
  Serious: Yes (Hospitalization)
  Sender: FDA-Public Use
  Company Number: JP-ABBVIE-13P-087-1159137-00

PATIENT
  Age: 61 Year
  Sex: Male
  Weight: 82 kg

DRUGS (13)
  1. LEUPRORELIN DEPOT [Suspect]
     Indication: PROSTATE CANCER
     Dosage: POWDER AND SOLVENT FOR PROLONGED-RELEASE SUSPENSION FOR INJECTION
     Route: 058
     Dates: start: 20130409
  2. MAINTATE [Concomitant]
     Indication: PRODUCT USED FOR UNKNOWN INDICATION
  3. ADALAT CR [Concomitant]
     Indication: PRODUCT USED FOR UNKNOWN INDICATION
  4. SALOBEL [Concomitant]
     Indication: PRODUCT USED FOR UNKNOWN INDICATION
  5. BEZAFIBRATE [Concomitant]
     Indication: PRODUCT USED FOR UNKNOWN INDICATION
  6. WARFARIN [Concomitant]
     Indication: PRODUCT USED FOR UNKNOWN INDICATION
  7. SUNRYTHM [Concomitant]
     Indication: PRODUCT USED FOR UNKNOWN INDICATION
  8. BIOFERMIN [Concomitant]
     Indication: PRODUCT USED FOR UNKNOWN INDICATION
  9. LORFENAMIN [Concomitant]
     Indication: PRODUCT USED FOR UNKNOWN INDICATION
  10. SEFTAC [Concomitant]
     Indication: PRODUCT USED FOR UNKNOWN INDICATION
  11. PATELL [Concomitant]
     Indication: PRODUCT USED FOR UNKNOWN INDICATION
     Dates: start: 20130619
  12. EPADEL-S [Concomitant]
     Indication: PRODUCT USED FOR UNKNOWN INDICATION
     Dates: start: 20130827
  13. BICALUTAMIDE [Concomitant]
     Indication: PRODUCT USED FOR UNKNOWN INDICATION
     Dates: start: 20120919, end: 20130923

REACTIONS (1)
  - Large intestine polyp [Recovered/Resolved]
